FAERS Safety Report 25555619 (Version 1)
Quarter: 2025Q3

REPORT INFORMATION
  Report Type: Spontaneous
  Country: RS (occurrence: RS)
  Receive Date: 20250715
  Receipt Date: 20250715
  Transmission Date: 20251020
  Serious: Yes (Other)
  Sender: DAIICHI
  Company Number: RS-ASTRAZENECA-202507BKN002687RS

PATIENT
  Sex: Female

DRUGS (1)
  1. TRASTUZUMAB DERUXTECAN [Suspect]
     Active Substance: TRASTUZUMAB DERUXTECAN
     Indication: HER2 low breast cancer
     Route: 065

REACTIONS (4)
  - Pneumonitis [Unknown]
  - Metastases to bone [Unknown]
  - Disease progression [Unknown]
  - Metastases to liver [Unknown]
